FAERS Safety Report 7416182-3 (Version None)
Quarter: 2011Q2

REPORT INFORMATION
  Report Type: 
  Country: None (occurrence: None)
  Receive Date: 20110414
  Receipt Date: 20110407
  Transmission Date: 20111010
  Serious: Yes (Other)
  Sender: FDA-Public Use
  Company Number: NL-ABBOTT-11P-114-0717588-00

PATIENT
  Sex: Female
  Weight: 53 kg

DRUGS (10)
  1. MAGNESIUM HYDROXIDE [Concomitant]
     Indication: CONSTIPATION
     Route: 048
     Dates: start: 20101208, end: 20101226
  2. AMITRIPTYLINE HCL [Concomitant]
     Indication: PAIN
  3. FAMOTIDINE [Concomitant]
     Indication: GASTRIC DISORDER
     Route: 048
     Dates: start: 20090401
  4. METOPROLOL TARTRATE [Concomitant]
     Indication: MIGRAINE
     Route: 065
     Dates: start: 20110311
  5. LUCRIN 11.25 MG [Suspect]
     Indication: OVARIAN CYST
     Route: 058
     Dates: start: 20110119, end: 20110119
  6. AMITRIPTYLINE HCL [Concomitant]
     Indication: DEPRESSION
     Route: 048
     Dates: start: 20101208, end: 20101226
  7. MEBEVERINE [Concomitant]
     Indication: GASTROINTESTINAL PAIN
     Dosage: ACCORDING TO INSTRUCTION GP
     Route: 048
     Dates: start: 20101208, end: 20101226
  8. LUCRIN [Suspect]
     Indication: PRODUCT USED FOR UNKNOWN INDICATION
     Route: 058
     Dates: end: 20090101
  9. LEVONORGESTREL AND ETHINYL ESTRADIOL [Concomitant]
     Indication: CONTRACEPTION
     Dosage: 20/100 UCG DAILY
     Route: 048
     Dates: start: 20110315
  10. ZOLPIDEM [Concomitant]
     Indication: INSOMNIA
     Dosage: 1 UNIT DAILY
     Route: 048
     Dates: start: 20101208, end: 20101208

REACTIONS (8)
  - SPEECH DISORDER [None]
  - VISUAL IMPAIRMENT [None]
  - HEADACHE [None]
  - MENSTRUAL DISORDER [None]
  - MIGRAINE WITH AURA [None]
  - NEUROLOGICAL SYMPTOM [None]
  - HYPERHIDROSIS [None]
  - HYPOAESTHESIA [None]
